FAERS Safety Report 19379835 (Version 1)
Quarter: 2021Q2

REPORT INFORMATION
  Report Type: Spontaneous
  Country: US (occurrence: US)
  Receive Date: 20210607
  Receipt Date: 20210607
  Transmission Date: 20210717
  Serious: No
  Sender: FDA-Public Use
  Company Number: US-009507513-2106USA000816

PATIENT
  Sex: Female

DRUGS (13)
  1. ALLOPURINOL. [Concomitant]
     Active Substance: ALLOPURINOL
  2. LATANOPROST. [Concomitant]
     Active Substance: LATANOPROST
  3. CARVEDILOL. [Concomitant]
     Active Substance: CARVEDILOL
  4. CALCIUM CITRATE WITH VITAMIN D3 [Concomitant]
     Active Substance: CALCIUM CITRATE\CHOLECALCIFEROL
  5. NEXIUM 24HR [Concomitant]
     Active Substance: ESOMEPRAZOLE MAGNESIUM
  6. COQ10 COMPLEX [Concomitant]
  7. FERROUS SULFATE. [Concomitant]
     Active Substance: FERROUS SULFATE
  8. ISOSORBIDE MONONITRATE. [Concomitant]
     Active Substance: ISOSORBIDE MONONITRATE
  9. DIFICID [Suspect]
     Active Substance: FIDAXOMICIN
     Indication: CLOSTRIDIUM DIFFICILE INFECTION
     Dosage: 200MG TWICE PER DAY
     Dates: end: 20210530
  10. ATORVASTATIN [Concomitant]
     Active Substance: ATORVASTATIN
  11. MG?PLUS?PROTEIN [Concomitant]
  12. VITAMIN B12 [Concomitant]
     Active Substance: CYANOCOBALAMIN
  13. WARFARIN [Concomitant]
     Active Substance: WARFARIN

REACTIONS (1)
  - Diarrhoea [Recovered/Resolved]
